FAERS Safety Report 10049128 (Version 1)
Quarter: 2014Q2

REPORT INFORMATION
  Report Type: Report from Study
  Country: FR (occurrence: FR)
  Receive Date: 20140401
  Receipt Date: 20140401
  Transmission Date: 20141212
  Serious: Yes (Life-Threatening, Hospitalization)
  Sender: FDA-Public Use
  Company Number: FR-ROCHE-1371545

PATIENT
  Sex: Male

DRUGS (5)
  1. RITUXIMAB [Suspect]
     Indication: RHEUMATOID ARTHRITIS
     Route: 041
     Dates: start: 20080423
  2. METHOTREXATE [Suspect]
     Indication: PRODUCT USED FOR UNKNOWN INDICATION
     Route: 065
     Dates: start: 20080423, end: 20081030
  3. DUPHALAC [Concomitant]
  4. CORTANCYL [Concomitant]
     Route: 065
     Dates: start: 20110629
  5. LEFLUNOMIDE [Concomitant]
     Route: 065
     Dates: start: 20110629

REACTIONS (10)
  - Suicide attempt [Unknown]
  - Suicide attempt [Unknown]
  - Asthenia [Recovered/Resolved]
  - Weight decreased [Recovered/Resolved]
  - Sciatica [Unknown]
  - Urinary tract disorder [Unknown]
  - Dysuria [Unknown]
  - Diarrhoea [Not Recovered/Not Resolved]
  - Dyspnoea exertional [Not Recovered/Not Resolved]
  - Productive cough [Not Recovered/Not Resolved]
